FAERS Safety Report 8237828-6 (Version None)
Quarter: 2012Q1

REPORT INFORMATION
  Report Type: 
  Country: None (occurrence: None)
  Receive Date: 20120327
  Receipt Date: 20120321
  Transmission Date: 20120608
  Serious: Yes (Hospitalization, Other)
  Sender: FDA-Public Use
  Company Number: DE-ELI_LILLY_AND_COMPANY-DE201008000620

PATIENT
  Sex: Female
  Weight: 96 kg

DRUGS (18)
  1. PEMETREXED [Suspect]
     Indication: NON-SMALL CELL LUNG CANCER
     Dosage: 975 MG, OTHER
     Route: 042
     Dates: start: 20100507, end: 20100819
  2. RAMIPRIL [Concomitant]
     Indication: HYPERTENSION
     Dosage: UNK, UNK
     Dates: start: 19800101
  3. OMEPRAZOLE [Concomitant]
     Indication: THERAPEUTIC PROCEDURE
     Dosage: UNK, UNK
     Dates: start: 20100412
  4. BETA-ACETYLDIGOXIN [Concomitant]
     Indication: ARRHYTHMIA
     Dosage: UNK, UNK
     Dates: start: 19800101
  5. NEBIVOLOL [Concomitant]
     Indication: HYPERTENSION
     Dates: start: 19800101
  6. ENOXAPARIN [Concomitant]
     Dosage: 0.4 ML, UNK
     Dates: start: 20100818, end: 20100820
  7. DIPYRONE TAB [Concomitant]
     Indication: FLANK PAIN
     Dosage: 0.2 ML, UNK
     Dates: start: 20100707
  8. SIMVASTATIN [Concomitant]
     Indication: HYPERLIPIDAEMIA
     Dosage: UNK, UNK
     Dates: start: 19800101
  9. OXAZEPAM [Concomitant]
     Indication: INSOMNIA
     Dates: start: 20100728
  10. DEXAMETHASONE [Concomitant]
     Indication: NAUSEA
     Dosage: 8 MG, UNK
     Dates: start: 20100820, end: 20100822
  11. ENOXAPARIN [Concomitant]
     Indication: THROMBOSIS
     Dates: start: 20100707
  12. METOCLOPRAMIDE [Concomitant]
     Indication: NAUSEA
     Dosage: UNK, AS NEEDED
     Dates: start: 20100628
  13. CISPLATIN [Suspect]
     Indication: NON-SMALL CELL LUNG CANCER
     Dosage: 146 MG, OTHER
     Route: 042
     Dates: start: 20100507, end: 20100819
  14. MEDROXYPROGESTERONE [Concomitant]
     Indication: HYSTERECTOMY
     Dates: start: 19880101
  15. APREPITANT [Concomitant]
     Dosage: 80 MG, UNK
     Dates: start: 20100820, end: 20100821
  16. CALCIUM CARBONATE [Concomitant]
     Indication: HYPOCALCAEMIA
     Dates: start: 20100819
  17. FUROSEMIDE [Concomitant]
  18. FOLIC ACID [Concomitant]
     Dosage: UNK
     Dates: start: 20100430

REACTIONS (1)
  - HYPOMAGNESAEMIA [None]
